FAERS Safety Report 4583850-0 (Version None)
Quarter: 2005Q1

REPORT INFORMATION
  Report Type: 
  Country: None (occurrence: None)
  Receive Date: 20050125
  Receipt Date: 20041022
  Transmission Date: 20050727
  Serious: No
  Sender: FDA-Public Use
  Company Number: USA041082056

PATIENT
  Age: 68 Year
  Sex: Female
  Weight: 36 kg

DRUGS (5)
  1. FORTEO [Suspect]
     Indication: OSTEOPOROSIS
     Dosage: 20 UG DAY
     Dates: start: 20030723
  2. CALCIUM CARBONATE [Concomitant]
  3. FOSAMAX [Concomitant]
  4. BEXTRA [Concomitant]
  5. MGN-3 [Concomitant]

REACTIONS (6)
  - ASTHENIA [None]
  - BLOOD CALCIUM INCREASED [None]
  - CHEST PAIN [None]
  - FEELING ABNORMAL [None]
  - INCREASED APPETITE [None]
  - RESPIRATORY TRACT INFECTION [None]
